FAERS Safety Report 4429487-5 (Version None)
Quarter: 2004Q3

REPORT INFORMATION
  Report Type: 
  Country: None (occurrence: None)
  Receive Date: 20040819
  Receipt Date: 20040701
  Transmission Date: 20050211
  Serious: Yes (Hospitalization, Other)
  Sender: FDA-Public Use
  Company Number: FR-BRISTOL-MYERS SQUIBB COMPANY-12631107

PATIENT
  Age: 84 Year
  Sex: Male

DRUGS (6)
  1. LOPRIL TABS [Suspect]
     Indication: HYPERTENSION
     Dosage: UNSPECIFIED DATES; RESOLUTION OF EVENTS AFTER CHANGE OF ANTI-HYPERTENSIVE TRT DURING HOSP
     Route: 048
     Dates: end: 20040101
  2. SERC [Concomitant]
  3. ZYLORIC [Concomitant]
  4. LEXOMIL [Concomitant]
  5. FORLAX [Concomitant]
  6. OMEPRAZOLE [Concomitant]

REACTIONS (4)
  - CARDIOMEGALY [None]
  - DIZZINESS [None]
  - NAUSEA [None]
  - ORTHOSTATIC HYPOTENSION [None]
